FAERS Safety Report 4935312-6 (Version None)
Quarter: 2006Q1

REPORT INFORMATION
  Report Type: 
  Country: None (occurrence: None)
  Receive Date: 20060302
  Receipt Date: 20060210
  Transmission Date: 20060701
  Serious: Yes (Other)
  Sender: FDA-Public Use
  Company Number: US200601005366

PATIENT
  Age: 66 Year
  Sex: Male

DRUGS (6)
  1. CIALIS [Suspect]
     Indication: ERECTILE DYSFUNCTION
     Dosage: 20 MG, AS NEEDED
     Dates: start: 20040101, end: 20051101
  2. BUSPAR/AUS/(BUSPIRONE HYDROCHLORIDE) [Concomitant]
  3. WELLBUTRIN [Concomitant]
  4. ALLEGRA [Concomitant]
  5. MONTELUKAST SODIUM (MONTELUKAST SODIUM) [Concomitant]
  6. NICOTINE POLACRILEX (NICOTINE POLACRILEX) LOZENGE (TROCHE AND CANDY TO [Concomitant]

REACTIONS (5)
  - BLOOD CHOLESTEROL INCREASED [None]
  - CORNEAL ABRASION [None]
  - EYE IRRITATION [None]
  - EYE SWELLING [None]
  - OPTIC ISCHAEMIC NEUROPATHY [None]
